FAERS Safety Report 15319848 (Version 1)
Quarter: 2018Q3

REPORT INFORMATION
  Report Type: Spontaneous
  Country: US (occurrence: US)
  Receive Date: 20180820
  Receipt Date: 20180820
  Transmission Date: 20181010
  Serious: Yes (Disabling, Other)
  Sender: FDA-Public Use
  Company Number: None

PATIENT
  Age: 77 Year
  Sex: Female
  Weight: 65.25 kg

DRUGS (9)
  1. XANAX [Concomitant]
     Active Substance: ALPRAZOLAM
  2. RECLAST [Suspect]
     Active Substance: ZOLEDRONIC ACID
     Indication: BONE DENSITY ABNORMAL
     Route: 042
     Dates: start: 20171213, end: 20171213
  3. C [Concomitant]
  4. BIOTIN [Concomitant]
     Active Substance: BIOTIN
  5. COQ10 [Concomitant]
     Active Substance: UBIDECARENONE
  6. OMEPRAZOLE. [Concomitant]
     Active Substance: OMEPRAZOLE
  7. VITAMIN D3 [Concomitant]
     Active Substance: CHOLECALCIFEROL
  8. VITAMINS [Concomitant]
     Active Substance: VITAMINS
  9. AMLODEPRINE [Concomitant]

REACTIONS (2)
  - Wrong technique in product usage process [None]
  - Adverse event [None]

NARRATIVE: CASE EVENT DATE: 20171213
